FAERS Safety Report 5556638-1 (Version None)
Quarter: 2007Q4

REPORT INFORMATION
  Report Type: 
  Country: None (occurrence: None)
  Receive Date: 20071213
  Receipt Date: 20070910
  Transmission Date: 20080405
  Serious: No
  Sender: FDA-Public Use
  Company Number: US-AMGEN-KDL242716

PATIENT
  Sex: Female

DRUGS (3)
  1. ENBREL [Suspect]
     Indication: PSORIASIS
     Route: 058
     Dates: start: 20061001
  2. METHOTREXATE [Concomitant]
     Route: 048
     Dates: start: 20060701
  3. SORIATANE [Concomitant]
     Dates: start: 20050701

REACTIONS (2)
  - INJECTION SITE PAIN [None]
  - PSORIASIS [None]
